FAERS Safety Report 6956480-0 (Version None)
Quarter: 2010Q3

REPORT INFORMATION
  Report Type: 
  Country: None (occurrence: None)
  Receive Date: 20100830
  Receipt Date: 20100820
  Transmission Date: 20110219
  Serious: Yes (Other)
  Sender: FDA-Public Use
  Company Number: US-AMGEN-QUU429268

PATIENT
  Sex: Female
  Weight: 65.4 kg

DRUGS (1)
  1. ENBREL [Suspect]
     Indication: RHEUMATOID ARTHRITIS

REACTIONS (9)
  - ABDOMINAL DISCOMFORT [None]
  - ABDOMINAL PAIN UPPER [None]
  - FORMICATION [None]
  - GASTROINTESTINAL DISORDER [None]
  - HEADACHE [None]
  - MELANOCYTIC NAEVUS [None]
  - MUSCLE SPASMS [None]
  - SKIN SWELLING [None]
  - VISION BLURRED [None]
